FAERS Safety Report 5376156-3 (Version None)
Quarter: 2007Q3

REPORT INFORMATION
  Report Type: 
  Country: None (occurrence: None)
  Receive Date: 20070702
  Receipt Date: 20070628
  Transmission Date: 20080115
  Serious: Yes (Life-Threatening, Hospitalization)
  Sender: FDA-Public Use
  Company Number: BG-ASTRAZENECA-2007SE03745

PATIENT
  Sex: Male

DRUGS (1)
  1. BETALOC ZOC [Suspect]
     Indication: HYPERTENSION
     Route: 048
     Dates: start: 20050101, end: 20050101

REACTIONS (1)
  - ISCHAEMIC STROKE [None]
